FAERS Safety Report 5419994-0 (Version None)
Quarter: 2007Q3

REPORT INFORMATION
  Report Type: 
  Country: None (occurrence: None)
  Receive Date: 20070820
  Receipt Date: 20070813
  Transmission Date: 20080115
  Serious: Yes (Hospitalization)
  Sender: FDA-Public Use
  Company Number: US-BAYER-200616521BWH

PATIENT
  Age: 73 Year
  Sex: Male
  Weight: 73 kg

DRUGS (10)
  1. NEXAVAR [Suspect]
     Indication: RENAL CELL CARCINOMA STAGE UNSPECIFIED
     Dosage: TOTAL DAILY DOSE: 800 MG  UNIT DOSE: 200 MG
     Route: 048
     Dates: start: 20061006, end: 20070405
  2. COUMADIN [Concomitant]
     Route: 048
  3. AVODART [Concomitant]
  4. DARVOCET [Concomitant]
  5. PROMETHAZINE [Concomitant]
  6. FLOMAX [Concomitant]
  7. AMBIEN [Concomitant]
  8. VICODIN [Concomitant]
  9. CALCIUM CARBONATE [Concomitant]
  10. NEUTRAPHOS [Concomitant]

REACTIONS (12)
  - ABDOMINAL PAIN [None]
  - ASTHENIA [None]
  - BLOOD PHOSPHORUS DECREASED [None]
  - CONVULSION [None]
  - FATIGUE [None]
  - HYPOCALCAEMIA [None]
  - HYPOMAGNESAEMIA [None]
  - INSOMNIA [None]
  - MUSCLE SPASMS [None]
  - POSTICTAL STATE [None]
  - PRURITUS [None]
  - WEIGHT DECREASED [None]
